FAERS Safety Report 7088703-4 (Version None)
Quarter: 2010Q4

REPORT INFORMATION
  Report Type: 
  Country: None (occurrence: None)
  Receive Date: 20101108
  Receipt Date: 20101103
  Transmission Date: 20110411
  Serious: Yes (Life-Threatening)
  Sender: FDA-Public Use
  Company Number: DE-ROCHE-671003

PATIENT
  Sex: Female
  Weight: 56 kg

DRUGS (12)
  1. ROACTEMRA [Suspect]
     Indication: RHEUMATOID ARTHRITIS
     Route: 042
     Dates: start: 20091006, end: 20091006
  2. MARCUMAR [Concomitant]
     Indication: THROMBOSIS PROPHYLAXIS
     Route: 048
     Dates: start: 20091002, end: 20091016
  3. SEVREDOL [Concomitant]
     Indication: PAIN
     Route: 048
  4. PREDNISOLON [Concomitant]
     Indication: RHEUMATOID ARTHRITIS
     Route: 048
     Dates: start: 19810101
  5. PANTOPRAZOLE SODIUM [Concomitant]
     Indication: PROPHYLAXIS
     Route: 048
  6. AMLODIPINE [Concomitant]
     Indication: HYPERTENSION
     Route: 048
  7. LEVOTHYROXINE SODIUM [Concomitant]
     Indication: HYPOTHYROIDISM
     Route: 048
  8. RAMIPRIL [Concomitant]
     Indication: HYPERTENSION
     Route: 048
  9. HCT [Concomitant]
     Indication: HYPERTENSION
     Route: 048
  10. BISOPROLOL [Concomitant]
     Indication: HYPERTENSION
     Route: 048
  11. ARAVA [Concomitant]
     Indication: RHEUMATOID ARTHRITIS
     Route: 048
     Dates: start: 20020801, end: 20091016
  12. ENOXAPARIN SODIUM [Concomitant]
     Route: 058
     Dates: start: 20090922, end: 20091008

REACTIONS (2)
  - AUTOIMMUNE THROMBOCYTOPENIA [None]
  - UROSEPSIS [None]
